FAERS Safety Report 4732506-X (Version None)
Quarter: 2005Q3

REPORT INFORMATION
  Report Type: 
  Country: None (occurrence: None)
  Receive Date: 20050803
  Receipt Date: 20050727
  Transmission Date: 20060218
  Serious: Yes (Other)
  Sender: FDA-Public Use
  Company Number: BR-GLAXOSMITHKLINE-A0568315A

PATIENT
  Age: 56 Year
  Sex: Female
  Weight: 56 kg

DRUGS (2)
  1. AMOXIL [Suspect]
     Indication: PROPHYLAXIS
     Dosage: 150ML PER DAY
     Route: 048
     Dates: start: 20050719, end: 20050722
  2. NO CONCURRENT MEDICATION [Concomitant]

REACTIONS (3)
  - DIARRHOEA HAEMORRHAGIC [None]
  - MELAENA [None]
  - MUSCLE SPASMS [None]
